FAERS Safety Report 10205707 (Version 3)
Quarter: 2014Q4

REPORT INFORMATION
  Report Type: Not Available
  Country: FR (occurrence: FR)
  Receive Date: 20140530
  Receipt Date: 20141014
  Transmission Date: 20150528
  Serious: Yes (Life-Threatening, Hospitalization)
  Sender: FDA-Public Use
  Company Number: FR-BEH-2014042827

PATIENT
  Age: 1 Year
  Sex: Female
  Weight: 11.5 kg

DRUGS (2)
  1. PRIVIGEN [Suspect]
     Active Substance: HUMAN IMMUNOGLOBULIN G
     Route: 042
     Dates: start: 20140506, end: 20140506
  2. INFANRIX HEXA [Suspect]
     Active Substance: DIPHTHERIA AND TETANUS TOXOIDS AND ACELLULAR PERTUSSIS ADSORBED, INACTIVATED POLIOVIRUS AND HAEMOPHILUS B CONJUGATE AND HEPATITIS B VIRUS VACCINE
     Dates: start: 20140503, end: 20140503

REACTIONS (4)
  - Generalised tonic-clonic seizure [Recovered/Resolved]
  - Resuscitation [Recovered/Resolved]
  - Thrombocytopenia [None]
  - Viral rash [None]

NARRATIVE: CASE EVENT DATE: 20140506
